FAERS Safety Report 7242174-3 (Version None)
Quarter: 2011Q1

REPORT INFORMATION
  Report Type: 
  Country: None (occurrence: None)
  Receive Date: 20110124
  Receipt Date: 20101222
  Transmission Date: 20110831
  Serious: Yes (Hospitalization)
  Sender: FDA-Public Use
  Company Number: PHHY2010AU78163

PATIENT
  Sex: Female
  Weight: 50 kg

DRUGS (1)
  1. EXJADE [Suspect]
     Indication: FULL BLOOD COUNT DECREASED
     Dosage: 500 MG, UNK
     Route: 048
     Dates: start: 20080715

REACTIONS (8)
  - OROPHARYNGEAL PAIN [None]
  - ARTHRALGIA [None]
  - MUSCULOSKELETAL STIFFNESS [None]
  - PAIN IN JAW [None]
  - RASH PRURITIC [None]
  - MASTICATION DISORDER [None]
  - HEADACHE [None]
  - JOINT STIFFNESS [None]
